FAERS Safety Report 18603792 (Version 1)
Quarter: 2020Q4

REPORT INFORMATION
  Report Type: Spontaneous
  Country: US (occurrence: US)
  Receive Date: 20201210
  Receipt Date: 20201210
  Transmission Date: 20210114
  Serious: Yes (Hospitalization)
  Sender: FDA-Public Use
  Company Number: None

PATIENT
  Age: 76 Year
  Sex: Male

DRUGS (13)
  1. LORAZEPAM. [Concomitant]
     Active Substance: LORAZEPAM
  2. ATORVASTATIN [Concomitant]
     Active Substance: ATORVASTATIN
  3. SILDENAFIL 20MG TAB [Suspect]
     Active Substance: SILDENAFIL
     Indication: PULMONARY HYPERTENSION
     Route: 048
     Dates: start: 20180404
  4. FENOFIBRATE. [Concomitant]
     Active Substance: FENOFIBRATE
  5. IPRATROPIUM/SOL ALBUTER [Concomitant]
  6. NITROFURANTIN [Concomitant]
     Active Substance: NITROFURANTOIN
  7. DEXAMETHASON [Concomitant]
     Active Substance: DEXAMETHASONE
  8. FUROSEMIDE. [Concomitant]
     Active Substance: FUROSEMIDE
  9. LEVOCETIRIZI [Concomitant]
  10. LISINOPRIL. [Concomitant]
     Active Substance: LISINOPRIL
  11. HYOSCYAMINE. [Concomitant]
     Active Substance: HYOSCYAMINE
  12. MORPHINE SUL [Concomitant]
     Active Substance: MORPHINE SULFATE
  13. OMEPRAZOLE. [Concomitant]
     Active Substance: OMEPRAZOLE

REACTIONS (1)
  - Lung disorder [None]

NARRATIVE: CASE EVENT DATE: 20201116
